FAERS Safety Report 7134045-8 (Version None)
Quarter: 2010Q4

REPORT INFORMATION
  Report Type: 
  Country: None (occurrence: None)
  Receive Date: 20101203
  Receipt Date: 20101201
  Transmission Date: 20110411
  Serious: Yes (Life-Threatening, Hospitalization)
  Sender: FDA-Public Use
  Company Number: FR-JNJFOC-20101200678

PATIENT
  Sex: Female

DRUGS (5)
  1. HALDOL [Suspect]
     Indication: DELIRIUM
     Route: 048
     Dates: start: 20101015, end: 20101017
  2. RIVOTRIL [Suspect]
     Indication: DELIRIUM
     Route: 048
  3. IMOVANE [Suspect]
     Indication: DELIRIUM
     Route: 048
  4. AMLOR [Concomitant]
     Indication: DELIRIUM
     Route: 065
  5. LOXEN [Concomitant]
     Indication: DELIRIUM
     Route: 065

REACTIONS (2)
  - COMA [None]
  - INAPPROPRIATE ANTIDIURETIC HORMONE SECRETION [None]
